FAERS Safety Report 7099684-1 (Version None)
Quarter: 2010Q4

REPORT INFORMATION
  Report Type: 
  Country: None (occurrence: None)
  Receive Date: 20101112
  Receipt Date: 20081106
  Transmission Date: 20110411
  Serious: No
  Sender: FDA-Public Use
  Company Number: US-KINGPHARMUSA00001-K200801286

PATIENT
  Sex: Male
  Weight: 83.9 kg

DRUGS (1)
  1. AVINZA [Suspect]
     Indication: PAIN IN EXTREMITY
     Dosage: 60 MG, QD
     Dates: start: 20060101

REACTIONS (1)
  - DRUG SCREEN POSITIVE [None]
